FAERS Safety Report 6950026-9 (Version None)
Quarter: 2010Q3

REPORT INFORMATION
  Report Type: 
  Country: None (occurrence: None)
  Receive Date: 20100828
  Receipt Date: 20100125
  Transmission Date: 20110219
  Serious: No
  Sender: FDA-Public Use
  Company Number: US-ABBOTT-10P-163-0622471-00

PATIENT
  Sex: Female
  Weight: 83.99 kg

DRUGS (2)
  1. NIASPAN [Suspect]
     Indication: BLOOD CHOLESTEROL INCREASED
     Dates: start: 20100101, end: 20100101
  2. NIASPAN [Suspect]
     Dates: start: 20100124, end: 20100125

REACTIONS (5)
  - ABDOMINAL DISCOMFORT [None]
  - DRUG DOSE OMISSION [None]
  - FLUSHING [None]
  - NAUSEA [None]
  - RASH [None]
